FAERS Safety Report 17286219 (Version 1)
Quarter: 2020Q1

REPORT INFORMATION
  Report Type: Spontaneous
  Country: US (occurrence: US)
  Receive Date: 20200118
  Receipt Date: 20200118
  Transmission Date: 20200409
  Serious: No
  Sender: FDA-Public Use
  Company Number: US-009507513-2001USA000416

PATIENT
  Age: 42 Year
  Sex: Male

DRUGS (3)
  1. VINCRISTINE [Concomitant]
     Active Substance: VINCRISTINE
     Indication: EWING^S SARCOMA
  2. TEMODAR [Suspect]
     Active Substance: TEMOZOLOMIDE
     Indication: EWING^S SARCOMA
  3. IRINOTECAN HYDROCHLORIDE. [Concomitant]
     Active Substance: IRINOTECAN HYDROCHLORIDE
     Indication: EWING^S SARCOMA

REACTIONS (1)
  - Product use in unapproved indication [Unknown]
